FAERS Safety Report 10699761 (Version 1)
Quarter: 2015Q1

REPORT INFORMATION
  Report Type: Spontaneous
  Country: JP (occurrence: JP)
  Receive Date: 20150109
  Receipt Date: 20150109
  Transmission Date: 20150721
  Serious: Yes (Death)
  Sender: FDA-Public Use
  Company Number: JP-CIPLA LTD.-2015JP00283

PATIENT

DRUGS (2)
  1. IRINOTECAN [Suspect]
     Active Substance: IRINOTECAN
     Indication: OVARIAN CANCER
     Dosage: 70 MG/M2, OVER 90 MIN, ON DAYS 1 AND 15, REPEATED EVERY 28 DAYS UP TO 6 CYCLES
     Route: 042
  2. ETOPOSIDE. [Suspect]
     Active Substance: ETOPOSIDE
     Indication: OVARIAN CANCER
     Dosage: 50 MG/M2, (ONCE A DAY FROM DAY 1 TO DAY 21), REPEATED EVERY 28 DAYS UP TO 6 CYCLES
     Route: 048

REACTIONS (1)
  - Death [Fatal]
